FAERS Safety Report 16071878 (Version 1)
Quarter: 2019Q1

REPORT INFORMATION
  Report Type: Report from Study
  Country: US (occurrence: US)
  Receive Date: 20190314
  Receipt Date: 20190314
  Transmission Date: 20190418
  Serious: Yes (Other)
  Sender: FDA-Public Use
  Company Number: US-PFIZER INC-2019103889

PATIENT
  Age: 34 Year
  Sex: Male

DRUGS (4)
  1. XANAX [Suspect]
     Active Substance: ALPRAZOLAM
     Dosage: UNK
     Route: 048
  2. SUBOXONE [Suspect]
     Active Substance: BUPRENORPHINE HYDROCHLORIDE\NALOXONE HYDROCHLORIDE
     Indication: DRUG DEPENDENCE
     Dosage: BUPRENORPHINE HYDROCHLORIDE/NALOXONE HYDROCHLORIDE], 8MG FILM AT A DOSE OF 8MG TWO FILMS DAY)
     Route: 060
  3. SUBOXONE [Suspect]
     Active Substance: BUPRENORPHINE HYDROCHLORIDE\NALOXONE HYDROCHLORIDE
     Dosage: BUPRENORPHINE HYDROCHLORIDE/NALOXONE HYDROCHLORIDE, 8MG, ONE FILM DAILY
     Route: 060
  4. HEROIN [Suspect]
     Active Substance: DIAMORPHINE
     Dosage: UNK
     Route: 051

REACTIONS (4)
  - Loss of consciousness [Recovered/Resolved]
  - Drug abuse [Unknown]
  - Intentional underdose [Recovered/Resolved]
  - Overdose [Recovered/Resolved]
